FAERS Safety Report 22181075 (Version 6)
Quarter: 2023Q4

REPORT INFORMATION
  Report Type: Report from Study
  Country: US (occurrence: US)
  Receive Date: 20230406
  Receipt Date: 20231026
  Transmission Date: 20240110
  Serious: Yes (Hospitalization)
  Sender: FDA-Public Use
  Company Number: US-INSMED, INC.-2023-01030-US

PATIENT
  Sex: Female

DRUGS (2)
  1. ARIKAYCE [Suspect]
     Active Substance: AMIKACIN
     Indication: Mycobacterial infection
     Dosage: 590 MILLIGRAM, QD, 28 DAYS ON, 28 DAYS OFF.
     Route: 055
     Dates: start: 20230317, end: 202303
  2. ARIKAYCE [Suspect]
     Active Substance: AMIKACIN
     Dosage: 590 MILLIGRAM
     Route: 055
     Dates: start: 2023

REACTIONS (14)
  - Heart rate increased [Unknown]
  - Abdominal pain upper [Unknown]
  - Pyrexia [Unknown]
  - Nausea [Unknown]
  - Chest pain [Unknown]
  - Hypertension [Unknown]
  - Liver disorder [Unknown]
  - Renal disorder [Unknown]
  - Pruritus [Unknown]
  - Chest discomfort [Unknown]
  - Unevaluable event [Unknown]
  - Malaise [Not Recovered/Not Resolved]
  - Off label use [Unknown]
  - Insurance issue [Unknown]

NARRATIVE: CASE EVENT DATE: 20230101
